FAERS Safety Report 18116181 (Version 1)
Quarter: 2020Q3

REPORT INFORMATION
  Report Type: Spontaneous
  Country: US (occurrence: US)
  Receive Date: 20200805
  Receipt Date: 20200805
  Transmission Date: 20201103
  Serious: Yes (Other)
  Sender: FDA-Public Use
  Company Number: US-AMGEN-USASP2020125351

PATIENT
  Sex: Female

DRUGS (2)
  1. CANNABIDIOL [Concomitant]
     Active Substance: CANNABIDIOL
     Indication: MIGRAINE
     Dosage: UNK UNK, QD
  2. AIMOVIG [Suspect]
     Active Substance: ERENUMAB-AOOE
     Indication: MIGRAINE
     Dosage: UNK
     Route: 065

REACTIONS (4)
  - Depression suicidal [Unknown]
  - Drug ineffective [Unknown]
  - Gastric disorder [Unknown]
  - Contusion [Not Recovered/Not Resolved]
